FAERS Safety Report 4656682-2 (Version None)
Quarter: 2005Q2

REPORT INFORMATION
  Report Type: 
  Country: None (occurrence: None)
  Receive Date: 20050331
  Receipt Date: 20050124
  Transmission Date: 20051028
  Serious: Yes (Hospitalization)
  Sender: FDA-Public Use
  Company Number: US109361

PATIENT
  Age: 49 Year
  Sex: Female

DRUGS (3)
  1. NEULASTA [Suspect]
     Indication: CHEMOTHERAPY
     Dosage: 6 MG
     Dates: start: 20050118
  2. LEVOTHRYROXINE SODIUM [Concomitant]
  3. PACLITAXEL [Concomitant]

REACTIONS (3)
  - PAIN [None]
  - PYREXIA [None]
  - WHITE BLOOD CELL COUNT INCREASED [None]
